FAERS Safety Report 6299592-X (Version None)
Quarter: 2009Q3

REPORT INFORMATION
  Report Type: 
  Country: None (occurrence: None)
  Receive Date: 20090805
  Receipt Date: 20090805
  Transmission Date: 20100115
  Serious: Yes (Hospitalization)
  Sender: FDA-Public Use
  Company Number: None

PATIENT
  Age: 58 Year
  Sex: Male

DRUGS (1)
  1. IFOSFAMIDE [Suspect]
     Dosage: 1000 IV DRIP
     Route: 041
     Dates: start: 20090415, end: 20090415

REACTIONS (2)
  - DELIRIUM [None]
  - MENTAL STATUS CHANGES [None]
